FAERS Safety Report 7687810-2 (Version None)
Quarter: 2011Q3

REPORT INFORMATION
  Report Type: 
  Country: None (occurrence: None)
  Receive Date: 20110816
  Receipt Date: 20110816
  Transmission Date: 20111222
  Serious: Yes (Hospitalization)
  Sender: FDA-Public Use
  Company Number: None

PATIENT
  Sex: Female
  Weight: 81.6475 kg

DRUGS (2)
  1. CYMBALTA [Suspect]
     Indication: MAJOR DEPRESSION
     Dosage: 30 MG 1X DAY
     Dates: start: 20110607, end: 20110620
  2. CYMBALTA [Suspect]
     Dosage: 60MG 1XDAY

REACTIONS (13)
  - MYALGIA [None]
  - VERTIGO [None]
  - HEADACHE [None]
  - EYE PAIN [None]
  - SENSORY LOSS [None]
  - CONFUSIONAL STATE [None]
  - SPEECH DISORDER [None]
  - DRY MOUTH [None]
  - TREMOR [None]
  - VISION BLURRED [None]
  - BONE PAIN [None]
  - DRY EYE [None]
  - RESPIRATORY DISORDER [None]
